FAERS Safety Report 20311239 (Version 1)
Quarter: 2022Q1

REPORT INFORMATION
  Report Type: Spontaneous
  Country: CZ (occurrence: CZ)
  Receive Date: 20220107
  Receipt Date: 20220107
  Transmission Date: 20220423
  Serious: Yes (Other)
  Sender: FDA-Public Use
  Company Number: CZ-PFIZER INC-202101772586

PATIENT
  Age: 53 Year
  Sex: Female

DRUGS (3)
  1. IDARUBICIN HYDROCHLORIDE [Suspect]
     Active Substance: IDARUBICIN HYDROCHLORIDE
     Indication: Acute myeloid leukaemia
     Dosage: 2ND INDUCTION, 12 MG/M2 ON DAYS 1-3
  2. CYTARABINE [Suspect]
     Active Substance: CYTARABINE
     Indication: Acute myeloid leukaemia
     Dosage: 2ND INDUCTION, 2000 MG/M2 ON DAYS 1-5
  3. FLUDARABINE [Suspect]
     Active Substance: FLUDARABINE PHOSPHATE
     Indication: Acute myeloid leukaemia
     Dosage: 2ND INDUCTION, 30 MG/M2 ON DAYS 1-3

REACTIONS (2)
  - Uterine leiomyoma [Unknown]
  - Intermenstrual bleeding [Unknown]
